FAERS Safety Report 7423359-X (Version None)
Quarter: 2011Q2

REPORT INFORMATION
  Report Type: 
  Country: None (occurrence: None)
  Receive Date: 20110419
  Receipt Date: 20110411
  Transmission Date: 20111010
  Serious: Yes (Other)
  Sender: FDA-Public Use
  Company Number: AU-ROCHE-770863

PATIENT
  Sex: Male

DRUGS (1)
  1. PROXEN SR [Suspect]
     Indication: ARTHRITIS
     Route: 048

REACTIONS (1)
  - ABORTION SPONTANEOUS [None]
